FAERS Safety Report 10549451 (Version 3)
Quarter: 2015Q2

REPORT INFORMATION
  Report Type: Spontaneous
  Country: US (occurrence: None)
  Receive Date: 20141020
  Receipt Date: 20150420
  Transmission Date: 20150821
  Serious: No
  Sender: FDA-Public Use
  Company Number: AEGR000736

PATIENT
  Age: 62 Year
  Sex: Female
  Weight: 102 kg

DRUGS (15)
  1. LOSARTAN [Concomitant]
     Active Substance: LOSARTAN
  2. OMEGA 3-6-9 (FISH OIL, TOCOPHEROL) [Concomitant]
  3. IMDUR (ISOSORBIDE MONONITRATE) [Concomitant]
  4. LIPITOR [Concomitant]
     Active Substance: ATORVASTATIN CALCIUM
  5. IRON [Concomitant]
     Active Substance: IRON
  6. ZOLOFT [Concomitant]
     Active Substance: SERTRALINE HYDROCHLORIDE
  7. FERROUS SULFATE [Concomitant]
     Active Substance: FERROUS SULFATE\FERROUS SULFATE, DRIED
  8. METFORMIN [Concomitant]
     Active Substance: METFORMIN HYDROCHLORIDE
  9. NEXIUM [Concomitant]
     Active Substance: ESOMEPRAZOLE MAGNESIUM
  10. ZETIA [Concomitant]
     Active Substance: EZETIMIBE
  11. JUXTAPID [Suspect]
     Active Substance: LOMITAPIDE MESYLATE
     Indication: TYPE IIA HYPERLIPIDAEMIA
     Route: 048
     Dates: start: 20140808
  12. ASPIRIN (ACETYLSALICYLIC ACID) [Concomitant]
     Active Substance: ASPIRIN
  13. PLAVIX (CLOPIDOGREL BISULFATE) [Concomitant]
  14. AMLODIPINE (AMLODIPINE BESILATE) [Concomitant]
  15. TRAMADOL (TRAMADOL HYDROCHLORIDE) [Concomitant]
     Active Substance: TRAMADOL HYDROCHLORIDE

REACTIONS (3)
  - Diarrhoea [None]
  - Malaise [None]
  - Abdominal discomfort [None]

NARRATIVE: CASE EVENT DATE: 2014
